FAERS Safety Report 7715824-2 (Version None)
Quarter: 2011Q3

REPORT INFORMATION
  Report Type: 
  Country: None (occurrence: None)
  Receive Date: 20110829
  Receipt Date: 20110829
  Transmission Date: 20111222
  Serious: Yes (Other)
  Sender: FDA-Public Use
  Company Number: None

PATIENT
  Age: 33 Year
  Sex: Female
  Weight: 73.481 kg

DRUGS (1)
  1. AMOXICILLIN [Suspect]
     Indication: PHARYNGITIS STREPTOCOCCAL
     Dosage: 875 MG TABLET
     Route: 048
     Dates: start: 20110816, end: 20110824

REACTIONS (3)
  - DRUG ERUPTION [None]
  - SWELLING FACE [None]
  - RASH GENERALISED [None]
